FAERS Safety Report 6761811-0 (Version None)
Quarter: 2010Q2

REPORT INFORMATION
  Report Type: 
  Country: None (occurrence: None)
  Receive Date: 20100609
  Receipt Date: 20100531
  Transmission Date: 20101027
  Serious: Yes (Hospitalization, Other)
  Sender: FDA-Public Use
  Company Number: BR-JNJFOC-20100601244

PATIENT
  Age: 14 Year
  Sex: Male

DRUGS (5)
  1. ITRACONAZOLE [Suspect]
     Indication: PARACOCCIDIOIDES INFECTION
     Route: 065
  2. ITRACONAZOLE [Suspect]
     Route: 065
  3. ITRACONAZOLE [Suspect]
     Route: 065
  4. SULFADIAZINE [Concomitant]
     Indication: PARACOCCIDIOIDES INFECTION
     Route: 065
  5. AMPHOTERICIN B [Concomitant]
     Indication: PARACOCCIDIOIDES INFECTION
     Route: 065

REACTIONS (3)
  - DRUG EFFECT DECREASED [None]
  - DRUG INEFFECTIVE [None]
  - GENERAL PHYSICAL HEALTH DETERIORATION [None]
